FAERS Safety Report 7879435-0 (Version None)
Quarter: 2011Q4

REPORT INFORMATION
  Report Type: 
  Country: None (occurrence: None)
  Receive Date: 20111101
  Receipt Date: 20111028
  Transmission Date: 20120403
  Serious: Yes (Other)
  Sender: FDA-Public Use
  Company Number: US-PFIZER INC-2011264575

PATIENT
  Sex: Female
  Weight: 59.41 kg

DRUGS (16)
  1. CYMBALTA [Concomitant]
     Indication: PAIN
  2. AZELASTINE HYDROCHLORIDE [Concomitant]
     Indication: RHINITIS
     Dosage: UNK
  3. BEXTRA [Suspect]
     Indication: WRIST FRACTURE
     Dosage: UNK
  4. CYMBALTA [Concomitant]
     Indication: ANXIETY
     Dosage: 60 MG, UNK
     Dates: start: 20081001
  5. PREMARIN [Concomitant]
     Indication: HYSTERECTOMY
     Dosage: UNK
  6. TRAZODONE [Concomitant]
     Indication: SLEEP DISORDER
     Dosage: 50 MG, DAILY
  7. SIMVASTATIN/NIACIN [Concomitant]
     Indication: BLOOD CHOLESTEROL ABNORMAL
     Dosage: NIACIN 500MG /SIMVASTATIN 20 MG, UNK
  8. CALCIUM [Concomitant]
     Indication: MINERAL SUPPLEMENTATION
     Dosage: 1200 MG, UNK
  9. PREMARIN [Concomitant]
     Indication: VULVOVAGINAL DRYNESS
  10. MAGNESIUM [Concomitant]
     Indication: MINERAL SUPPLEMENTATION
     Dosage: 500 MG, UNK
  11. BEXTRA [Suspect]
     Indication: COMPLEX REGIONAL PAIN SYNDROME
  12. FISH OIL [Concomitant]
     Dosage: UNK
  13. NASONEX [Concomitant]
     Indication: RHINITIS
     Dosage: 50 UG, 2 SPRAYS IN A DAY
  14. PREMARIN [Concomitant]
     Indication: ATROPHIC VULVOVAGINITIS
  15. VITAMIN D [Concomitant]
     Indication: VITAMIN SUPPLEMENTATION
     Dosage: 1000 OR 1200 MG
  16. MULTI-VITAMINS [Concomitant]
     Indication: VITAMIN SUPPLEMENTATION
     Dosage: UNK

REACTIONS (1)
  - HEART RATE IRREGULAR [None]
